FAERS Safety Report 24215859 (Version 2)
Quarter: 2025Q2

REPORT INFORMATION
  Report Type: Spontaneous
  Country: US (occurrence: US)
  Receive Date: 20240816
  Receipt Date: 20250530
  Transmission Date: 20250717
  Serious: Yes (Other)
  Sender: CIPLA
  Company Number: US-CIPLA (EU) LIMITED-2024US08359

PATIENT

DRUGS (5)
  1. ALBUTEROL [Suspect]
     Active Substance: ALBUTEROL
     Indication: Product used for unknown indication
     Route: 065
     Dates: end: 2023
  2. ALBUTEROL [Suspect]
     Active Substance: ALBUTEROL
     Route: 065
     Dates: end: 2023
  3. ALBUTEROL [Suspect]
     Active Substance: ALBUTEROL
     Route: 065
     Dates: end: 2023
  4. ALBUTEROL [Suspect]
     Active Substance: ALBUTEROL
     Route: 065
     Dates: end: 2023
  5. LEVALBUTEROL [Concomitant]
     Active Substance: LEVALBUTEROL
     Indication: Product used for unknown indication
     Route: 065

REACTIONS (5)
  - Adverse event [Unknown]
  - Illness [Unknown]
  - Feeling abnormal [Unknown]
  - Product dose omission issue [Unknown]
  - Product communication issue [Unknown]

NARRATIVE: CASE EVENT DATE: 20230101
